FAERS Safety Report 20974459 (Version 1)
Quarter: 2022Q2

REPORT INFORMATION
  Report Type: Spontaneous
  Country: BR (occurrence: BR)
  Receive Date: 20220617
  Receipt Date: 20220617
  Transmission Date: 20220720
  Serious: Yes (Other)
  Sender: FDA-Public Use
  Company Number: BR-CHEPLA-2022004876

PATIENT
  Age: 66 Year
  Sex: Male
  Weight: 93.5 kg

DRUGS (18)
  1. CLONAZEPAM [Suspect]
     Active Substance: CLONAZEPAM
     Indication: Feeling of relaxation
     Dosage: RIVOTRIL 0.5 MG
     Route: 048
  2. CLONAZEPAM [Suspect]
     Active Substance: CLONAZEPAM
     Indication: Insomnia
     Dosage: RIVOTRIL 0.5 MG
     Route: 048
  3. CLONAZEPAM [Suspect]
     Active Substance: CLONAZEPAM
     Indication: Depression
     Dosage: RIVOTRIL 0.5 MG
     Route: 048
  4. CLONAZEPAM [Suspect]
     Active Substance: CLONAZEPAM
     Indication: Feeling of relaxation
     Dosage: RIVOTRIL 2 MG (HE USED TO BREAK THE 2 MG TABLET IN HALF)
     Route: 048
  5. CLONAZEPAM [Suspect]
     Active Substance: CLONAZEPAM
     Indication: Insomnia
     Dosage: RIVOTRIL 2 MG (HE USED TO BREAK THE 2 MG TABLET IN HALF)
     Route: 048
  6. CLONAZEPAM [Suspect]
     Active Substance: CLONAZEPAM
     Indication: Depression
     Dosage: RIVOTRIL 2 MG (HE USED TO BREAK THE 2 MG TABLET IN HALF)
     Route: 048
  7. CLONAZEPAM [Suspect]
     Active Substance: CLONAZEPAM
     Indication: Feeling of relaxation
     Dosage: RIVOTRIL 2 MG (STARTED 8/9 MONTHS AGO)
     Route: 048
  8. CLONAZEPAM [Suspect]
     Active Substance: CLONAZEPAM
     Indication: Insomnia
     Dosage: RIVOTRIL 2 MG (STARTED 8/9 MONTHS AGO)
     Route: 048
  9. CLONAZEPAM [Suspect]
     Active Substance: CLONAZEPAM
     Indication: Depression
     Dosage: RIVOTRIL 2 MG (STARTED 8/9 MONTHS AGO)
     Route: 048
  10. CLONAZEPAM [Suspect]
     Active Substance: CLONAZEPAM
     Indication: Feeling of relaxation
     Dosage: RIVOTRIL 2 MG (USING ONLY 1/4 OF THE TABLET)
     Route: 048
  11. CLONAZEPAM [Suspect]
     Active Substance: CLONAZEPAM
     Indication: Insomnia
     Dosage: RIVOTRIL 2 MG (USING ONLY 1/4 OF THE TABLET)
     Route: 048
  12. CLONAZEPAM [Suspect]
     Active Substance: CLONAZEPAM
     Indication: Depression
     Dosage: RIVOTRIL 2 MG (USING ONLY 1/4 OF THE TABLET)
     Route: 048
  13. Menelati Mirtazapina [Concomitant]
     Indication: Depression
     Dosage: AT NIGHT (STARTED 9 MONTHS AGO)?DAILY DOSE: 1 DOSAGE FORM
     Route: 048
  14. Menelati Mirtazapina [Concomitant]
     Indication: Anxiety
     Dosage: AT NIGHT (STARTED 9 MONTHS AGO)?DAILY DOSE: 1 DOSAGE FORM
     Route: 048
  15. CITALOPRAM [Concomitant]
     Active Substance: CITALOPRAM HYDROBROMIDE
     Indication: Depression
     Dosage: STARTED 14 DAYS AGO
     Route: 048
  16. CITALOPRAM [Concomitant]
     Active Substance: CITALOPRAM HYDROBROMIDE
     Indication: Anxiety
     Dosage: STARTED 14 DAYS AGO
     Route: 048
  17. ESCITALOPRAM [Concomitant]
     Active Substance: ESCITALOPRAM OXALATE
     Indication: Anxiety
     Dosage: STARTED A LONG TIME AGO
     Route: 048
  18. ESCITALOPRAM [Concomitant]
     Active Substance: ESCITALOPRAM OXALATE
     Indication: Depression
     Dosage: STARTED A LONG TIME AGO
     Route: 048

REACTIONS (10)
  - Arrhythmia [Not Recovered/Not Resolved]
  - Drug dependence [Not Recovered/Not Resolved]
  - Rhonchi [Not Recovered/Not Resolved]
  - Osteoarthritis [Not Recovered/Not Resolved]
  - Burning sensation [Not Recovered/Not Resolved]
  - Chills [Not Recovered/Not Resolved]
  - Chest pain [Not Recovered/Not Resolved]
  - Anxiety [Unknown]
  - Product use in unapproved indication [Not Recovered/Not Resolved]
  - Incorrect product administration duration [Not Recovered/Not Resolved]

NARRATIVE: CASE EVENT DATE: 20150901
